FAERS Safety Report 9160157 (Version 2)
Quarter: 2013Q2

REPORT INFORMATION
  Report Type: Spontaneous
  Country: FR (occurrence: FR)
  Receive Date: 20130313
  Receipt Date: 20130415
  Transmission Date: 20140414
  Serious: Yes (Hospitalization)
  Sender: FDA-Public Use
  Company Number: FR-ROCHE-1196556

PATIENT
  Age: 74 Year
  Sex: Male
  Weight: 83 kg

DRUGS (14)
  1. CEFTRIAXONE [Suspect]
     Indication: PROSTATITIS
     Route: 042
     Dates: start: 20130210, end: 20130213
  2. BACTRIM [Suspect]
     Indication: PRODUCT USED FOR UNKNOWN INDICATION
     Route: 048
     Dates: start: 20130213
  3. TAHOR [Concomitant]
     Route: 048
  4. KARDEGIC [Concomitant]
     Route: 048
  5. RENITEC [Concomitant]
     Route: 048
  6. LASILIX [Concomitant]
     Route: 048
  7. EUPANTOL [Concomitant]
     Route: 048
  8. KREDEX [Concomitant]
     Route: 048
  9. CORDARONE [Concomitant]
     Route: 048
  10. ALDACTONE [Concomitant]
     Route: 048
  11. LYRICA [Concomitant]
     Route: 048
  12. VENTOLIN [Concomitant]
     Route: 045
  13. FLIXOTIDE [Concomitant]
     Route: 045
  14. BRICANYL [Concomitant]
     Route: 045

REACTIONS (2)
  - Rash maculo-papular [Recovered/Resolved]
  - Renal failure chronic [Recovered/Resolved]
